FAERS Safety Report 14157941 (Version 3)
Quarter: 2017Q4

REPORT INFORMATION
  Report Type: Spontaneous
  Country: US (occurrence: US)
  Receive Date: 20171103
  Receipt Date: 20171115
  Transmission Date: 20180321
  Serious: Yes (Other)
  Sender: FDA-Public Use
  Company Number: US-MALLINCKRODT-T201704341

PATIENT
  Age: 58 Year
  Sex: Female
  Weight: 58 kg

DRUGS (5)
  1. HYDROCODONE/ACETAMINOPHEN [Concomitant]
     Active Substance: ACETAMINOPHEN\HYDROCODONE
     Indication: BREAKTHROUGH PAIN
     Dosage: 10/325 MG TABLETS EVERY 4-5 HOURS
  2. FENTANYL TRANSDERMAL SYSTEM [Suspect]
     Active Substance: FENTANYL
     Indication: SPINAL CORD INJURY
  3. FENTANYL TRANSDERMAL SYSTEM [Suspect]
     Active Substance: FENTANYL
     Indication: JOINT INJURY
  4. HYDROCODONE [Concomitant]
     Active Substance: HYDROCODONE
     Indication: PRODUCT USED FOR UNKNOWN INDICATION
     Dosage: UNK
  5. FENTANYL TRANSDERMAL SYSTEM [Suspect]
     Active Substance: FENTANYL
     Indication: PAIN
     Dosage: 75 MCG/H EVERY 72 HOURS (EVERY 3 DAYS)
     Route: 062

REACTIONS (10)
  - Pain [Unknown]
  - Sciatica [Unknown]
  - Drug withdrawal syndrome [Unknown]
  - Drug administered at inappropriate site [Unknown]
  - Drug intolerance [Unknown]
  - Drug ineffective [Unknown]
  - Fall [Unknown]
  - Muscle strain [Unknown]
  - Dislocation of vertebra [Unknown]
  - Contusion [Unknown]

NARRATIVE: CASE EVENT DATE: 201602
